FAERS Safety Report 8762689 (Version 4)
Quarter: 2013Q4

REPORT INFORMATION
  Report Type: Report from Study
  Country: BR (occurrence: BR)
  Receive Date: 20120830
  Receipt Date: 20131126
  Transmission Date: 20140711
  Serious: Yes (Other)
  Sender: FDA-Public Use
  Company Number: BR-ROCHE-1103922

PATIENT
  Sex: Male
  Weight: 85 kg

DRUGS (3)
  1. PEGASYS [Suspect]
     Indication: HEPATITIS C
     Route: 042
     Dates: start: 2010
  2. PEGASYS [Suspect]
     Route: 065
     Dates: start: 2003
  3. PROPRANOLOL [Concomitant]
     Indication: HYPERTENSION
     Route: 065

REACTIONS (12)
  - Hepatitis C [Not Recovered/Not Resolved]
  - Ascites [Unknown]
  - Viral load increased [Not Recovered/Not Resolved]
  - Spleen disorder [Unknown]
  - Leukocytosis [Recovered/Resolved]
  - Diabetes mellitus [Recovering/Resolving]
  - Pyrexia [Recovered/Resolved]
  - Headache [Recovered/Resolved]
  - Anaemia [Recovered/Resolved]
  - Alopecia [Recovered/Resolved]
  - Platelet count decreased [Recovered/Resolved]
  - Arthralgia [Recovered/Resolved]
